FAERS Safety Report 7623677-6 (Version None)
Quarter: 2011Q3

REPORT INFORMATION
  Report Type: 
  Country: None (occurrence: None)
  Receive Date: 20110720
  Receipt Date: 20110718
  Transmission Date: 20111222
  Serious: Yes (Death, Hospitalization)
  Sender: FDA-Public Use
  Company Number: DE-GLAXOSMITHKLINE-D0071792A

PATIENT
  Sex: Male

DRUGS (2)
  1. ARZERRA [Suspect]
     Indication: CHRONIC LYMPHOCYTIC LEUKAEMIA
     Route: 065
     Dates: start: 20110207, end: 20110228
  2. ALEMTUZUMAB [Concomitant]
     Indication: CHRONIC LYMPHOCYTIC LEUKAEMIA
     Route: 065
     Dates: start: 20100930, end: 20101115

REACTIONS (17)
  - DECREASED APPETITE [None]
  - DYSPNOEA EXERTIONAL [None]
  - MULTI-ORGAN FAILURE [None]
  - THROMBOCYTOPENIA [None]
  - SEPSIS [None]
  - HYPOKALAEMIA [None]
  - CHRONIC LYMPHOCYTIC LEUKAEMIA [None]
  - ENTEROCOCCAL SEPSIS [None]
  - NAUSEA [None]
  - DIARRHOEA [None]
  - ADENOVIRUS INFECTION [None]
  - HEPATITIS FULMINANT [None]
  - HEPATORENAL SYNDROME [None]
  - MYELODYSPLASTIC SYNDROME [None]
  - WEIGHT DECREASED [None]
  - PYREXIA [None]
  - ASTHENIA [None]
